FAERS Safety Report 11455694 (Version 1)
Quarter: 2015Q3

REPORT INFORMATION
  Report Type: Spontaneous
  Country: US (occurrence: US)
  Receive Date: 20150903
  Receipt Date: 20150903
  Transmission Date: 20151125
  Serious: No
  Sender: FDA-Public Use
  Company Number: US-BEH-2015049912

PATIENT
  Sex: Female
  Weight: 124.7 kg

DRUGS (27)
  1. ZEMAIRA [Suspect]
     Active Substance: .ALPHA.1-PROTEINASE INHIBITOR HUMAN
     Indication: ALPHA-1 ANTI-TRYPSIN DEFICIENCY
     Dosage: 1006 MG/VIAL; DOSNG PERIOD 25FEB2015 TO 24MAR2015
     Route: 042
     Dates: start: 20130103
  2. LEVAQUIN [Concomitant]
     Active Substance: LEVOFLOXACIN
  3. VITAMIN D3 [Concomitant]
     Active Substance: CHOLECALCIFEROL
  4. PREDNISONE. [Concomitant]
     Active Substance: PREDNISONE
  5. XANAX [Concomitant]
     Active Substance: ALPRAZOLAM
  6. EPIPEN [Concomitant]
     Active Substance: EPINEPHRINE
  7. SULFAMETHOXAZOLE-TRIMETHOPRIM (SMZ) [Concomitant]
     Active Substance: SULFAMETHOXAZOLE\TRIMETHOPRIM
  8. DILAUDID [Concomitant]
     Active Substance: HYDROMORPHONE HYDROCHLORIDE
  9. POTASSIUM [Concomitant]
     Active Substance: POTASSIUM
  10. VITAMIN E [Concomitant]
     Active Substance: .ALPHA.-TOCOPHEROL
  11. VITAMIN B12 [Concomitant]
     Active Substance: CYANOCOBALAMIN
  12. COUMADIN [Concomitant]
     Active Substance: WARFARIN SODIUM
  13. ZEMAIRA [Suspect]
     Active Substance: .ALPHA.1-PROTEINASE INHIBITOR HUMAN
     Indication: STATUS ASTHMATICUS
     Dosage: 1006 MG/VIAL; DOSNG PERIOD 25FEB2015 TO 24MAR2015
     Route: 042
     Dates: start: 20130103
  14. DIPHENHYDRAMINE. [Concomitant]
     Active Substance: DIPHENHYDRAMINE
  15. PROCARDIA [Concomitant]
     Active Substance: NIFEDIPINE
  16. NOVOLOG [Concomitant]
     Active Substance: INSULIN ASPART
  17. METFORMIN [Concomitant]
     Active Substance: METFORMIN HYDROCHLORIDE
  18. XOPENEX [Concomitant]
     Active Substance: LEVALBUTEROL HYDROCHLORIDE
  19. HYZAAR [Concomitant]
     Active Substance: HYDROCHLOROTHIAZIDE\LOSARTAN POTASSIUM
  20. MULTIVITAMIN [Concomitant]
     Active Substance: VITAMINS
  21. CALCIUM [Concomitant]
     Active Substance: CALCIUM
  22. PULMICORT TURBUHALER [Concomitant]
     Active Substance: BUDESONIDE
  23. LIDOCAINE. [Concomitant]
     Active Substance: LIDOCAINE
  24. LEVEMIR [Concomitant]
     Active Substance: INSULIN DETEMIR
  25. SODIUM CHLORIDE. [Concomitant]
     Active Substance: SODIUM CHLORIDE
  26. CEPHALEXIN. [Concomitant]
     Active Substance: CEPHALEXIN
  27. OXYGEN. [Concomitant]
     Active Substance: OXYGEN

REACTIONS (2)
  - Haematoma [Unknown]
  - Peripheral swelling [Unknown]
